FAERS Safety Report 9005556 (Version 1)
Quarter: 2013Q1

REPORT INFORMATION
  Report Type: Spontaneous
  Country: US (occurrence: US)
  Receive Date: 20130109
  Receipt Date: 20130109
  Transmission Date: 20140127
  Serious: Yes (Other)
  Sender: FDA-Public Use
  Company Number: US-ABBOTT-13P-163-1031636-00

PATIENT
  Sex: 0

DRUGS (2)
  1. HUMIRA [Suspect]
     Indication: PSORIASIS
     Dosage: SHOTS
  2. UNSPECIFIED [Suspect]
     Indication: PSORIASIS

REACTIONS (2)
  - Breast cancer [Unknown]
  - Colon cancer [Unknown]
